FAERS Safety Report 5263863-6 (Version None)
Quarter: 2007Q1

REPORT INFORMATION
  Report Type: 
  Country: None (occurrence: None)
  Receive Date: 20061213
  Receipt Date: 20040322
  Transmission Date: 20070707
  Serious: Yes (Other)
  Sender: FDA-Public Use
  Company Number: 2004UW05464

PATIENT
  Age: 69 Year
  Sex: Male
  Weight: 58.9676 kg

DRUGS (5)
  1. IRESSA [Suspect]
     Indication: NON-SMALL CELL LUNG CANCER
     Dosage: 250 MG QD PO
     Route: 048
     Dates: start: 20040217
  2. CELEBREX [Concomitant]
  3. DURAGESIC-100 [Concomitant]
  4. DARVOCET-N 100 [Concomitant]
  5. ATIVAN [Concomitant]

REACTIONS (1)
  - OVERDOSE [None]
